FAERS Safety Report 6723234-X (Version None)
Quarter: 2010Q2

REPORT INFORMATION
  Report Type: 
  Country: None (occurrence: None)
  Receive Date: 20100513
  Receipt Date: 20100506
  Transmission Date: 20101027
  Serious: Yes (Death)
  Sender: FDA-Public Use
  Company Number: JP-ABBOTT-10P-087-0639249-00

PATIENT
  Age: 87 Year
  Sex: Male
  Weight: 45.9 kg

DRUGS (3)
  1. LEUPROLIDE ACETATE [Suspect]
     Indication: PROSTATE CANCER STAGE III
     Route: 058
     Dates: start: 20080407, end: 20081215
  2. BICALUTAMIDE [Concomitant]
     Indication: PROSTATE CANCER STAGE III
     Route: 048
     Dates: start: 20080407, end: 20081215
  3. ZOMETA [Concomitant]
     Indication: PROSTATE CANCER STAGE III
     Route: 042
     Dates: start: 20080811, end: 20081110

REACTIONS (2)
  - BLOOD UREA INCREASED [None]
  - DEATH [None]
